FAERS Safety Report 6795268-0 (Version None)
Quarter: 2010Q2

REPORT INFORMATION
  Report Type: 
  Country: None (occurrence: None)
  Receive Date: 20100625
  Receipt Date: 20100615
  Transmission Date: 20101027
  Serious: Yes (Hospitalization, Other)
  Sender: FDA-Public Use
  Company Number: CHPA2010DE10165

PATIENT
  Sex: Male

DRUGS (7)
  1. OTRIVEN (NCH) [Suspect]
     Indication: RHINITIS
     Dosage: UNK, UNK
     Route: 045
     Dates: start: 20080511, end: 20080514
  2. TEGRETOL [Suspect]
     Dosage: UNK, UNK
     Route: 065
  3. ACETAMINOPHEN [Suspect]
     Indication: PYREXIA
     Dosage: ^1-1-1-1 1-0-0^
     Route: 054
     Dates: start: 20080519, end: 20080521
  4. VOMEX A ^ENDOPHARM^ [Suspect]
     Indication: VOMITING
     Dosage: ^0-1-1 1-1-1 1-0-0^
     Route: 048
     Dates: start: 20080519
  5. OLYNTH ^SASSE FRIEDRICH^ [Suspect]
     Indication: SINUSITIS
     Dosage: ^SEVERAL TIMES^
     Route: 045
     Dates: start: 20080519
  6. LAMICTAL [Suspect]
     Dosage: UNK, UNK
     Route: 065
  7. COTRIM [Suspect]
     Dosage: UNK, UNK
     Route: 065

REACTIONS (12)
  - BLISTER [None]
  - EAR DISORDER [None]
  - EAR PAIN [None]
  - GENITAL EROSION [None]
  - LIP EROSION [None]
  - NASAL DISORDER [None]
  - ORAL MUCOSA EROSION [None]
  - PRURITUS [None]
  - PYREXIA [None]
  - SKIN DISCOLOURATION [None]
  - STEVENS-JOHNSON SYNDROME [None]
  - VOMITING [None]
